FAERS Safety Report 21217663 (Version 1)
Quarter: 2022Q3

REPORT INFORMATION
  Report Type: Spontaneous
  Country: US (occurrence: None)
  Receive Date: 20220815
  Receipt Date: 20220815
  Transmission Date: 20221026
  Serious: Yes (Hospitalization)
  Sender: FDA-Public Use
  Company Number: None

PATIENT
  Sex: Female

DRUGS (12)
  1. KESIMPTA [Suspect]
     Active Substance: OFATUMUMAB
     Indication: Psoriasis
     Dosage: OTHER QUANTITY : 20 MG/0.4ML;?FREQUENCY : MONTHLY;?
     Route: 058
     Dates: start: 20211230
  2. KESIMPTA [Suspect]
     Active Substance: OFATUMUMAB
     Dosage: OTHER QUANTITY : ONE PEN;?FREQUENCY : MONTHLY;?
     Route: 058
  3. ADDERALL [Concomitant]
     Active Substance: AMPHETAMINE ASPARTATE\AMPHETAMINE SULFATE\DEXTROAMPHETAMINE SACCHARATE\DEXTROAMPHETAMINE SULFATE
  4. BACLOFEN [Concomitant]
     Active Substance: BACLOFEN
  5. CELECOXIB [Concomitant]
     Active Substance: CELECOXIB
  6. GABAPENTIN [Concomitant]
     Active Substance: GABAPENTIN
  7. GLATIRAMER [Concomitant]
     Active Substance: GLATIRAMER
  8. METFORMIN [Concomitant]
     Active Substance: METFORMIN HYDROCHLORIDE
  9. NORCO [Concomitant]
     Active Substance: ACETAMINOPHEN\HYDROCODONE BITARTRATE
  10. OTEZLA [Concomitant]
     Active Substance: APREMILAST
  11. PAROXETINE [Concomitant]
     Active Substance: PAROXETINE
  12. ZOLOFT [Concomitant]
     Active Substance: SERTRALINE HYDROCHLORIDE

REACTIONS (1)
  - Psoriasis [None]
